FAERS Safety Report 7179970-7 (Version None)
Quarter: 2010Q4

REPORT INFORMATION
  Report Type: 
  Country: None (occurrence: None)
  Receive Date: 20101123
  Receipt Date: 20100805
  Transmission Date: 20110411
  Serious: No
  Sender: FDA-Public Use
  Company Number: 016933

PATIENT
  Sex: Female
  Weight: 54 kg

DRUGS (3)
  1. CIMZIA [Suspect]
     Indication: CROHN'S DISEASE
     Dosage: (SUBCUTANEOUS)
     Route: 058
     Dates: start: 20100501
  2. PREDNISONE [Concomitant]
  3. XANAX [Concomitant]

REACTIONS (3)
  - ANAL FISTULA [None]
  - DRUG INEFFECTIVE [None]
  - FREQUENT BOWEL MOVEMENTS [None]
